FAERS Safety Report 7334246-X (Version None)
Quarter: 2011Q1

REPORT INFORMATION
  Report Type: 
  Country: None (occurrence: None)
  Receive Date: 20110307
  Receipt Date: 20100105
  Transmission Date: 20110831
  Serious: No
  Sender: FDA-Public Use
  Company Number: US-BAYER-201010524NA

PATIENT
  Sex: Female
  Weight: 77.098 kg

DRUGS (1)
  1. MIRENA [Suspect]
     Dosage: 20 ?G/D, CONT
     Dates: start: 20080901

REACTIONS (4)
  - LIBIDO DECREASED [None]
  - MUSCLE SPASMS [None]
  - METRORRHAGIA [None]
  - ANXIETY [None]
